FAERS Safety Report 23785832 (Version 1)
Quarter: 2024Q2

REPORT INFORMATION
  Report Type: Spontaneous
  Country: GB (occurrence: GB)
  Receive Date: 20240425
  Receipt Date: 20240425
  Transmission Date: 20240716
  Serious: Yes (Other)
  Sender: FDA-Public Use
  Company Number: GB-PRINSTON PHARMACEUTICAL INC.-2024PRN00172

PATIENT
  Sex: Male

DRUGS (18)
  1. LEVETIRACETAM [Suspect]
     Active Substance: LEVETIRACETAM
     Indication: Epilepsy
     Dosage: 1000 MG, 1X/DAY
  2. LEVETIRACETAM [Suspect]
     Active Substance: LEVETIRACETAM
     Dosage: 500 MG (PRESENTATION/DAY 0)
  3. LEVETIRACETAM [Suspect]
     Active Substance: LEVETIRACETAM
     Dosage: 375 MG (BETWEEN DAY 0 AND DAY 1)
  4. LEVETIRACETAM [Suspect]
     Active Substance: LEVETIRACETAM
     Dosage: 500 MG (BETWEEN DAY 2 AND DAY 3)
  5. LEVETIRACETAM [Suspect]
     Active Substance: LEVETIRACETAM
     Dosage: 250 MG (BETWEEN DAY 5 AND DAY 6)
  6. LEVETIRACETAM [Suspect]
     Active Substance: LEVETIRACETAM
     Dosage: 1000 MG (BETWEEN DAY 13 AND DAY 14)
  7. LEVETIRACETAM [Suspect]
     Active Substance: LEVETIRACETAM
     Dosage: 250 MG (BETWEEN DAY 14 AND DAY 15)
  8. LEVETIRACETAM [Suspect]
     Active Substance: LEVETIRACETAM
     Dosage: 125 MG (BETWEEN DAY 16 AND DAY 17)
  9. LEVETIRACETAM [Suspect]
     Active Substance: LEVETIRACETAM
     Dosage: 1000 MG (BETWEEN DAY 18 AND DAY 19; ONLY)
  10. LAMOTRIGINE [Suspect]
     Active Substance: LAMOTRIGINE
     Indication: Epilepsy
     Dosage: 400 MG, 1X/DAY
  11. LAMOTRIGINE [Suspect]
     Active Substance: LAMOTRIGINE
     Dosage: 200 MG (PRESENTATION/DAY 0)
  12. LAMOTRIGINE [Suspect]
     Active Substance: LAMOTRIGINE
     Dosage: 150 MG (BETWEEN DAY 0 AND DAY 1)
  13. LAMOTRIGINE [Suspect]
     Active Substance: LAMOTRIGINE
     Dosage: 200 MG (BETWEEN DAY 2 AND DAY 3)
  14. LAMOTRIGINE [Suspect]
     Active Substance: LAMOTRIGINE
     Dosage: 100 MG (BETWEEN DAY 5 AND DAY 6)
  15. LAMOTRIGINE [Suspect]
     Active Substance: LAMOTRIGINE
     Dosage: 75 MG (BETWEEN DAY 13 AND DAY 14)
  16. LAMOTRIGINE [Suspect]
     Active Substance: LAMOTRIGINE
     Dosage: 150 MG (BETWEEN DAY 14 AND DAY 15)
  17. LAMOTRIGINE [Suspect]
     Active Substance: LAMOTRIGINE
     Dosage: 150 MG (BETWEEN DAY 16 AND DAY 17)
  18. LAMOTRIGINE [Suspect]
     Active Substance: LAMOTRIGINE
     Dosage: 150 MG, (BETWEEN DAY 17 AND 18; ONLY)

REACTIONS (2)
  - Toxic optic neuropathy [Recovered/Resolved]
  - Optic disc haemorrhage [Recovered/Resolved]
